FAERS Safety Report 22603453 (Version 1)
Quarter: 2023Q2

REPORT INFORMATION
  Report Type: Report from Study
  Country: GB (occurrence: GB)
  Receive Date: 20230615
  Receipt Date: 20230615
  Transmission Date: 20230721
  Serious: Yes (Other)
  Sender: FDA-Public Use
  Company Number: GB-002147023-NVSC2020GB233098

PATIENT
  Sex: Female

DRUGS (1)
  1. COSENTYX [Suspect]
     Active Substance: SECUKINUMAB
     Indication: Ankylosing spondylitis
     Dosage: 150 MG, QMO (EVERY 28 DAYS), 2 PRE-FILLED DISPOSABLE INJECTION
     Route: 058
     Dates: start: 20170412

REACTIONS (7)
  - Neoplasm [Unknown]
  - Tooth abscess [Unknown]
  - Hyperhidrosis [Unknown]
  - Cough [Recovering/Resolving]
  - Night sweats [Recovering/Resolving]
  - Headache [Recovering/Resolving]
  - Oropharyngeal pain [Recovering/Resolving]
